FAERS Safety Report 8265406-1 (Version None)
Quarter: 2012Q2

REPORT INFORMATION
  Report Type: 
  Country: None (occurrence: None)
  Receive Date: 20120406
  Receipt Date: 20120406
  Transmission Date: 20120825
  Serious: Yes (Other)
  Sender: FDA-Public Use
  Company Number: IT-PFIZER INC-2012082359

PATIENT
  Age: 30 Year
  Sex: Male

DRUGS (2)
  1. VARENICLINE TARTRATE [Suspect]
     Indication: SMOKING CESSATION THERAPY
     Dosage: UNK
     Dates: start: 20120320, end: 20120301
  2. VARENICLINE TARTRATE [Suspect]
     Dosage: UNKNOWN INCREASING DOSE
     Dates: start: 20120301, end: 20120330

REACTIONS (6)
  - ROAD TRAFFIC ACCIDENT [None]
  - FLATULENCE [None]
  - DYSKINESIA [None]
  - CONFUSIONAL STATE [None]
  - DIZZINESS [None]
  - RASH MACULO-PAPULAR [None]
